FAERS Safety Report 15420269 (Version 1)
Quarter: 2018Q3

REPORT INFORMATION
  Report Type: Spontaneous
  Country: US (occurrence: US)
  Receive Date: 20180914
  Receipt Date: 20180914
  Transmission Date: 20181010
  Serious: No
  Sender: FDA-Public Use
  Company Number: None

PATIENT
  Age: 87 Year
  Sex: Male

DRUGS (1)
  1. VINCRISTINE INJ [Suspect]
     Active Substance: VINCRISTINE SULFATE
     Dates: start: 20180805

REACTIONS (3)
  - White blood cell count decreased [None]
  - Abdominal pain upper [None]
  - Non-Hodgkin^s lymphoma [None]

NARRATIVE: CASE EVENT DATE: 20180813
